FAERS Safety Report 14692407 (Version 2)
Quarter: 2018Q2

REPORT INFORMATION
  Report Type: Spontaneous
  Country: US (occurrence: US)
  Receive Date: 20180329
  Receipt Date: 20180420
  Transmission Date: 20180711
  Serious: No
  Sender: FDA-Public Use
  Company Number: US-PFIZER INC-2018123053

PATIENT
  Sex: Female

DRUGS (2)
  1. AMLODIPINE BESILATE [Suspect]
     Active Substance: AMLODIPINE BESYLATE
     Indication: BLOOD PRESSURE MANAGEMENT
     Dosage: UNK (FOR 3 OR 4 DAYS)
  2. TRAVATAN Z [Interacting]
     Active Substance: TRAVOPROST
     Dosage: UNK

REACTIONS (2)
  - Drug interaction [Unknown]
  - Reaction to preservatives [Unknown]
